FAERS Safety Report 5464539-2 (Version None)
Quarter: 2007Q3

REPORT INFORMATION
  Report Type: 
  Country: None (occurrence: None)
  Receive Date: 20070921
  Receipt Date: 20070910
  Transmission Date: 20080115
  Serious: No
  Sender: FDA-Public Use
  Company Number: US-BOEHRINGER INGELHEIM PHARMACEUTICALS, INC.-2005-BP-19107BP

PATIENT
  Sex: Female

DRUGS (8)
  1. CATAPRES-TTS-1 [Suspect]
     Indication: HYPERTENSION
     Route: 061
     Dates: start: 20040404
  2. AVAPRO [Concomitant]
     Indication: CARDIAC DISORDER
     Route: 048
  3. ATIVAN [Concomitant]
     Indication: SLEEP DISORDER
     Route: 048
  4. ATIVAN [Concomitant]
     Indication: NERVOUSNESS
  5. MERAPROL [Concomitant]
     Indication: DEPRESSION
     Route: 048
  6. WELLBUTRIN [Concomitant]
  7. LASIX [Concomitant]
  8. SHOTS FOR TINNITUS [Concomitant]

REACTIONS (6)
  - APPLICATION SITE BLEEDING [None]
  - APPLICATION SITE DISCOMFORT [None]
  - APPLICATION SITE ERYTHEMA [None]
  - APPLICATION SITE PRURITUS [None]
  - APPLICATION SITE URTICARIA [None]
  - URTICARIA [None]
